FAERS Safety Report 12892945 (Version 2)
Quarter: 2016Q4

REPORT INFORMATION
  Report Type: Spontaneous
  Country: IT (occurrence: IT)
  Receive Date: 20161028
  Receipt Date: 20161104
  Transmission Date: 20170207
  Serious: Yes (Other)
  Sender: FDA-Public Use
  Company Number: IT-SA-2016SA195866

PATIENT
  Age: 61 Year
  Sex: Male
  Weight: 78 kg

DRUGS (1)
  1. FERLIXIT [Suspect]
     Active Substance: SODIUM FERRIC GLUCONATE COMPLEX
     Indication: IRON DEFICIENCY
     Route: 042
     Dates: start: 20161012, end: 20161019

REACTIONS (2)
  - Subcutaneous abscess [Not Recovered/Not Resolved]
  - Infusion site phlebitis [Not Recovered/Not Resolved]

NARRATIVE: CASE EVENT DATE: 20161019
